FAERS Safety Report 10240112 (Version 1)
Quarter: 2014Q2

REPORT INFORMATION
  Report Type: Spontaneous
  Country: US (occurrence: US)
  Receive Date: 20140617
  Receipt Date: 20140617
  Transmission Date: 20141212
  Serious: Yes (Other)
  Sender: FDA-Public Use
  Company Number: US-ROCHE-1415254

PATIENT
  Age: 73 Year
  Sex: Female

DRUGS (5)
  1. GAZYVA [Suspect]
     Indication: CHRONIC LYMPHOCYTIC LEUKAEMIA
     Route: 065
     Dates: start: 20140402, end: 20140403
  2. GAZYVA [Suspect]
     Route: 065
     Dates: start: 20140409
  3. GAZYVA [Suspect]
     Route: 065
     Dates: start: 20140416
  4. GAZYVA [Suspect]
     Route: 065
     Dates: start: 20140430
  5. CHLORAMBUCIL [Concomitant]

REACTIONS (1)
  - Acute myeloid leukaemia [Unknown]
